FAERS Safety Report 25399632 (Version 1)
Quarter: 2025Q2

REPORT INFORMATION
  Report Type: Report from Study
  Country: GB (occurrence: GB)
  Receive Date: 20250605
  Receipt Date: 20250605
  Transmission Date: 20250716
  Serious: Yes (Other)
  Sender: SAMSUNG BIOEPIS
  Company Number: GB-SAMSUNG BIOEPIS-SB-2025-16279

PATIENT
  Age: 87 Year
  Sex: Male

DRUGS (1)
  1. IMRALDI [Suspect]
     Active Substance: ADALIMUMAB
     Indication: Colitis ulcerative
     Dosage: 40 MG/0.8 ML;
     Route: 058
     Dates: start: 20250205

REACTIONS (3)
  - Colitis [Unknown]
  - Diarrhoea [Unknown]
  - Fatigue [Unknown]
